FAERS Safety Report 7248430-7 (Version None)
Quarter: 2011Q1

REPORT INFORMATION
  Report Type: 
  Country: None (occurrence: None)
  Receive Date: 20110127
  Receipt Date: 20110118
  Transmission Date: 20110831
  Serious: Yes (Hospitalization, Other)
  Sender: FDA-Public Use
  Company Number: US-MILLENNIUM PHARMACEUTICALS, INC.-2011-00231

PATIENT
  Sex: Male

DRUGS (3)
  1. VELCADE [Suspect]
     Indication: MULTIPLE MYELOMA
     Dosage: 1.0 MG/M2, 1/WEEK
     Dates: start: 20100805
  2. AVASTIN [Suspect]
     Indication: PRODUCT USED FOR UNKNOWN INDICATION
  3. FOLFIRI [Concomitant]
     Indication: COLON CANCER
     Dosage: UNK
     Dates: start: 20101019

REACTIONS (3)
  - COLON CANCER RECURRENT [None]
  - SOMNOLENCE [None]
  - BACTERIAL SEPSIS [None]
